FAERS Safety Report 15078474 (Version 2)
Quarter: 2018Q3

REPORT INFORMATION
  Report Type: Spontaneous
  Country: JP (occurrence: JP)
  Receive Date: 20180627
  Receipt Date: 20180710
  Transmission Date: 20181010
  Serious: Yes (Hospitalization, Other)
  Sender: FDA-Public Use
  Company Number: JP-MYLANLABS-2018M1046351

PATIENT
  Age: 15 Year
  Sex: Male

DRUGS (4)
  1. DOXORUBICIN [Concomitant]
     Active Substance: DOXORUBICIN
     Indication: OSTEOSARCOMA
     Route: 065
     Dates: end: 200911
  2. IFOSFAMIDE. [Interacting]
     Active Substance: IFOSFAMIDE
     Indication: OSTEOSARCOMA
     Dosage: CUMULATIVE DOSAGE TO FIRST REACTION: 69.7 G/M2.
     Route: 065
     Dates: end: 200911
  3. METHOTREXATE. [Suspect]
     Active Substance: METHOTREXATE
     Indication: OSTEOSARCOMA
     Route: 065
     Dates: end: 200911
  4. CISPLATIN. [Suspect]
     Active Substance: CISPLATIN
     Indication: OSTEOSARCOMA
     Route: 065
     Dates: end: 200911

REACTIONS (6)
  - Drug interaction [Recovering/Resolving]
  - Chronic kidney disease [Recovering/Resolving]
  - Metabolic acidosis [Unknown]
  - Nephropathy toxic [Recovering/Resolving]
  - Fanconi syndrome acquired [Recovering/Resolving]
  - Tubulointerstitial nephritis [Recovering/Resolving]
